FAERS Safety Report 10467298 (Version 1)
Quarter: 2014Q3

REPORT INFORMATION
  Report Type: Spontaneous
  Country: GB (occurrence: GB)
  Receive Date: 20140922
  Receipt Date: 20140922
  Transmission Date: 20150326
  Serious: Yes (Hospitalization)
  Sender: FDA-Public Use
  Company Number: GB-JNJFOC-20140914321

PATIENT
  Age: 73 Year
  Sex: Female

DRUGS (10)
  1. XARELTO [Suspect]
     Active Substance: RIVAROXABAN
     Indication: EMBOLISM VENOUS
     Route: 048
     Dates: start: 20140605
  2. XARELTO [Suspect]
     Active Substance: RIVAROXABAN
     Indication: PULMONARY EMBOLISM
     Route: 048
     Dates: end: 20140831
  3. XARELTO [Suspect]
     Active Substance: RIVAROXABAN
     Indication: EMBOLISM VENOUS
     Route: 048
     Dates: end: 20140831
  4. SALBUTAMOL [Concomitant]
     Active Substance: ALBUTEROL
     Route: 065
  5. TIOTROPIUM [Concomitant]
     Active Substance: TIOTROPIUM
     Route: 065
  6. METOLAZONE. [Concomitant]
     Active Substance: METOLAZONE
     Route: 065
  7. BUMETANIDE. [Concomitant]
     Active Substance: BUMETANIDE
     Route: 065
  8. LANSOPRAZOLE. [Concomitant]
     Active Substance: LANSOPRAZOLE
     Route: 065
  9. WARFARIN [Concomitant]
     Active Substance: WARFARIN
     Route: 065
  10. XARELTO [Suspect]
     Active Substance: RIVAROXABAN
     Indication: PULMONARY EMBOLISM
     Route: 048
     Dates: start: 20140605

REACTIONS (2)
  - Atrial fibrillation [Unknown]
  - Pruritus generalised [Recovering/Resolving]

NARRATIVE: CASE EVENT DATE: 20140701
